FAERS Safety Report 6554025-0 (Version None)
Quarter: 2010Q1

REPORT INFORMATION
  Report Type: 
  Country: None (occurrence: None)
  Receive Date: 20100125
  Receipt Date: 20100125
  Transmission Date: 20100710
  Serious: Yes (Life-Threatening, Disabling)
  Sender: FDA-Public Use
  Company Number: None

PATIENT
  Sex: Male
  Weight: 72.5755 kg

DRUGS (1)
  1. VERAPAMIL [Suspect]

REACTIONS (8)
  - AMNESIA [None]
  - ANXIETY [None]
  - DRUG HYPERSENSITIVITY [None]
  - INSOMNIA [None]
  - LIBIDO INCREASED [None]
  - PARTNER STRESS [None]
  - SUICIDAL IDEATION [None]
  - WEIGHT DECREASED [None]
